FAERS Safety Report 4491775-4 (Version None)
Quarter: 2004Q4

REPORT INFORMATION
  Report Type: 
  Country: None (occurrence: None)
  Receive Date: 20041101
  Receipt Date: 20040922
  Transmission Date: 20050328
  Serious: Yes (Hospitalization, Other)
  Sender: FDA-Public Use
  Company Number: 2004-00545

PATIENT
  Age: 66 Year
  Sex: Female

DRUGS (11)
  1. VELCADE [Suspect]
     Indication: MULTIPLE MYELOMA
     Dosage: IV BOLUS
     Route: 040
     Dates: start: 20040913
  2. BELOC (METOPROLOL TARTRATE) [Concomitant]
  3. ASCOTOP (ZOLMITRIPTAN) [Concomitant]
  4. LOVASTATIN [Concomitant]
  5. PANTOZOL (PANTOPRAZOLE SODIUM) [Concomitant]
  6. PIMAFUCIN             (AUS)(NATAMYCIN) [Concomitant]
  7. FERROSANOL (FERROGLYCINE SULFATE COMPLEX) [Concomitant]
  8. PREDNISONE [Concomitant]
  9. POTASSIUM [Concomitant]
  10. CLARITHROMYCIN [Concomitant]
  11. CIPROFLOXACIN [Concomitant]

REACTIONS (5)
  - CREATININE RENAL CLEARANCE INCREASED [None]
  - DEAFNESS UNILATERAL [None]
  - DISEASE PROGRESSION [None]
  - PROTEIN TOTAL INCREASED [None]
  - THROMBOCYTOPENIA [None]
